FAERS Safety Report 11292670 (Version 1)
Quarter: 2015Q3

REPORT INFORMATION
  Report Type: Spontaneous
  Country: BE (occurrence: BE)
  Receive Date: 20150722
  Receipt Date: 20150722
  Transmission Date: 20151125
  Serious: Yes (Other)
  Sender: FDA-Public Use
  Company Number: BE-ASTRAZENECA-2014SE97697

PATIENT
  Age: 831 Month
  Sex: Male
  Weight: 84 kg

DRUGS (15)
  1. ONGLYZA [Suspect]
     Active Substance: SAXAGLIPTIN HYDROCHLORIDE
     Indication: PRODUCT USED FOR UNKNOWN INDICATION
     Route: 048
     Dates: end: 20141204
  2. COVERSYL [Concomitant]
     Active Substance: PERINDOPRIL
  3. GLUCOPHAGE [Concomitant]
     Active Substance: METFORMIN HYDROCHLORIDE
     Dates: start: 201406
  4. EMCONCOR MINOR [Concomitant]
     Dosage: 2.5MG, HALF TABLET EVERY EVENING
  5. BURINEX [Concomitant]
     Active Substance: BUMETANIDE
     Dosage: 2 MG EVERY OTHER TWO DAYS
  6. BURINEX [Concomitant]
     Active Substance: BUMETANIDE
     Dosage: 1 MG EVERY TWO DAYS
  7. BEFACT FORTE [Concomitant]
  8. GLUCOPHAGE [Concomitant]
     Active Substance: METFORMIN HYDROCHLORIDE
     Dates: start: 20140611
  9. ALLOPURINOL. [Concomitant]
     Active Substance: ALLOPURINOL
  10. SIMVASTATINE [Concomitant]
     Active Substance: SIMVASTATIN
  11. ASAFLOW [Concomitant]
     Active Substance: ASPIRIN
  12. D-CURE FORTE [Concomitant]
  13. TARDYFERON [Concomitant]
     Active Substance: FERROUS SULFATE\FOLIC ACID
  14. EMCONCOR MITIS [Concomitant]
     Dosage: 5 MG, HALF TABLET EVERY MORNING
  15. ONGLYZA [Suspect]
     Active Substance: SAXAGLIPTIN HYDROCHLORIDE
     Indication: TYPE 2 DIABETES MELLITUS
     Route: 048
     Dates: end: 20141204

REACTIONS (4)
  - Renal impairment [Not Recovered/Not Resolved]
  - Gastrointestinal disorder [Recovered/Resolved]
  - Hypoglycaemia [Unknown]
  - Dysgeusia [Unknown]

NARRATIVE: CASE EVENT DATE: 201405
